FAERS Safety Report 11140937 (Version 1)
Quarter: 2015Q2

REPORT INFORMATION
  Report Type: Spontaneous
  Country: US (occurrence: US)
  Receive Date: 20150525
  Receipt Date: 20150525
  Transmission Date: 20150821
  Serious: No
  Sender: FDA-Public Use
  Company Number: US-JNJFOC-20140401601

PATIENT
  Age: 5 Year
  Sex: Male

DRUGS (1)
  1. RISPERDAL [Suspect]
     Active Substance: RISPERIDONE
     Indication: ATTENTION DEFICIT/HYPERACTIVITY DISORDER
     Route: 048
     Dates: start: 2004, end: 2005

REACTIONS (9)
  - Breast discolouration [Unknown]
  - Emotional distress [Unknown]
  - Gynaecomastia [Not Recovered/Not Resolved]
  - Product use issue [Unknown]
  - Drug ineffective [Unknown]
  - Rash [Unknown]
  - Obesity [Recovering/Resolving]
  - Discomfort [Unknown]
  - Urticaria [Unknown]

NARRATIVE: CASE EVENT DATE: 20040315
